FAERS Safety Report 8140860-4 (Version None)
Quarter: 2012Q1

REPORT INFORMATION
  Report Type: 
  Country: None (occurrence: None)
  Receive Date: 20120216
  Receipt Date: 20120214
  Transmission Date: 20120608
  Serious: Yes (Hospitalization)
  Sender: FDA-Public Use
  Company Number: US-JNJFOC-2008057540

PATIENT
  Age: 13 Month
  Sex: Male
  Weight: 11.8 kg

DRUGS (5)
  1. CHILDREN'S ZYRTEC ALLERGY [Suspect]
     Indication: ALLERGY PROPHYLAXIS
     Route: 048
  2. CHILDREN'S ZYRTEC ALLERGY [Suspect]
     Route: 048
  3. MOTRIN [Suspect]
     Indication: TEETHING
     Route: 048
     Dates: start: 20081205, end: 20081206
  4. CHILDREN'S TYLENOL SUSPENSION [Suspect]
     Indication: TEETHING
     Dosage: DAILY DOSE TEXT: EVERY 4-6 HOURS
     Route: 048
     Dates: start: 20080201
  5. CHILDREN'S MOTRIN [Suspect]
     Indication: TEETHING
     Route: 048
     Dates: start: 20081204

REACTIONS (1)
  - REACTION TO DRUG EXCIPIENTS [None]
